FAERS Safety Report 8151511-7 (Version None)
Quarter: 2012Q1

REPORT INFORMATION
  Report Type: 
  Country: None (occurrence: None)
  Receive Date: 20120220
  Receipt Date: 20120208
  Transmission Date: 20120608
  Serious: Yes (Hospitalization)
  Sender: FDA-Public Use
  Company Number: US-ELI_LILLY_AND_COMPANY-US201103008971

PATIENT
  Sex: Female

DRUGS (2)
  1. FORTEO [Suspect]
     Dosage: 20 UG, QD
  2. FORTEO [Suspect]
     Indication: OSTEOPOROSIS
     Dosage: 20 UG, QD
     Dates: start: 20110325

REACTIONS (6)
  - ARTHRALGIA [None]
  - INCORRECT STORAGE OF DRUG [None]
  - HOSPITALISATION [None]
  - INJURY ASSOCIATED WITH DEVICE [None]
  - WOUND HAEMORRHAGE [None]
  - DRUG DOSE OMISSION [None]
